FAERS Safety Report 10582292 (Version 2)
Quarter: 2014Q4

REPORT INFORMATION
  Report Type: Spontaneous
  Country: US (occurrence: US)
  Receive Date: 20141113
  Receipt Date: 20141113
  Transmission Date: 20150529
  Serious: Yes (Other)
  Sender: FDA-Public Use
  Company Number: US-UCBSA-2014009979

PATIENT
  Sex: Female

DRUGS (1)
  1. VIMPAT [Suspect]
     Active Substance: LACOSAMIDE
     Indication: CONVULSION PROPHYLAXIS
     Dosage: EITHER 100MG OR 200 MG IV, 2X/DAY (BID)
     Route: 042
     Dates: start: 201408

REACTIONS (1)
  - Apnoea [Unknown]

NARRATIVE: CASE EVENT DATE: 201408
